FAERS Safety Report 12252683 (Version 1)
Quarter: 2016Q2

REPORT INFORMATION
  Report Type: Spontaneous
  Country: US (occurrence: US)
  Receive Date: 20160411
  Receipt Date: 20160411
  Transmission Date: 20160815
  Serious: No
  Sender: FDA-Public Use
  Company Number: US-PFIZER INC-2016164225

PATIENT
  Sex: Male

DRUGS (2)
  1. IRON [Interacting]
     Active Substance: IRON
     Dosage: UNK
  2. ADVIL [Suspect]
     Active Substance: IBUPROFEN
     Indication: PAIN
     Dosage: 2 DF, UNK

REACTIONS (4)
  - Paraesthesia [Unknown]
  - Blood disorder [Unknown]
  - Feeling abnormal [Unknown]
  - Drug interaction [Unknown]
